FAERS Safety Report 7046298-5 (Version None)
Quarter: 2010Q4

REPORT INFORMATION
  Report Type: 
  Country: None (occurrence: None)
  Receive Date: 20101014
  Receipt Date: 20101005
  Transmission Date: 20110411
  Serious: Yes (Hospitalization)
  Sender: FDA-Public Use
  Company Number: B0677677A

PATIENT
  Sex: Male

DRUGS (13)
  1. VALACYCLOVIR HYDROCHLORIDE [Suspect]
     Indication: ORAL HERPES
     Dosage: 500MG TWICE PER DAY
     Route: 048
     Dates: start: 20100923, end: 20100927
  2. AUGMENTIN '125' [Concomitant]
     Route: 065
     Dates: start: 20100917, end: 20100922
  3. BRICANYL [Concomitant]
     Route: 055
     Dates: start: 20100917
  4. ATROVENT [Concomitant]
     Route: 055
     Dates: start: 20100917
  5. SOLUPRED [Concomitant]
     Dosage: 30MG PER DAY
     Route: 065
     Dates: start: 20100920
  6. PYOSTACINE [Concomitant]
     Dosage: 1G THREE TIMES PER DAY
     Route: 065
     Dates: start: 20100922
  7. NEXIUM [Concomitant]
  8. ALFUZOSIN HCL [Concomitant]
  9. ISOPTIN [Concomitant]
  10. LASIX [Concomitant]
  11. SINTROM [Concomitant]
  12. FORADIL [Concomitant]
  13. BRONCHODUAL [Concomitant]

REACTIONS (1)
  - NEUTROPENIA [None]
